FAERS Safety Report 7501964-X (Version None)
Quarter: 2011Q2

REPORT INFORMATION
  Report Type: 
  Country: None (occurrence: None)
  Receive Date: 20110525
  Receipt Date: 20110519
  Transmission Date: 20111010
  Serious: No
  Sender: FDA-Public Use
  Company Number: US-PFIZER INC-2011108406

PATIENT
  Sex: Male

DRUGS (1)
  1. CADUET [Suspect]
     Dosage: UNK

REACTIONS (4)
  - BACK PAIN [None]
  - DYSPNOEA [None]
  - MYALGIA [None]
  - MUSCLE TWITCHING [None]
